FAERS Safety Report 7417120-X (Version None)
Quarter: 2011Q2

REPORT INFORMATION
  Report Type: 
  Country: None (occurrence: None)
  Receive Date: 20110412
  Receipt Date: 20110412
  Transmission Date: 20111010
  Serious: Yes (Other)
  Sender: FDA-Public Use
  Company Number: None

PATIENT
  Sex: Female
  Weight: 108.8633 kg

DRUGS (1)
  1. NUVIGIL [Suspect]
     Indication: LETHARGY
     Dosage: 125 MG 1 TIME DAILY
     Dates: start: 20110201, end: 20110301

REACTIONS (2)
  - PSYCHOTIC DISORDER [None]
  - CONDITION AGGRAVATED [None]
